FAERS Safety Report 10167375 (Version 1)
Quarter: 2014Q2

REPORT INFORMATION
  Report Type: Spontaneous
  Country: US (occurrence: None)
  Receive Date: 20140509
  Receipt Date: 20140509
  Transmission Date: 20141212
  Serious: No
  Sender: FDA-Public Use
  Company Number: None

PATIENT
  Age: 47 Year
  Sex: Female
  Weight: 65.77 kg

DRUGS (1)
  1. LEVETIRACETAM [Suspect]
     Indication: GENERALISED TONIC-CLONIC SEIZURE
     Route: 048
     Dates: start: 201210, end: 201211

REACTIONS (6)
  - Drug ineffective [None]
  - Insomnia [None]
  - Abdominal discomfort [None]
  - Migraine [None]
  - Mania [None]
  - Product substitution issue [None]
